FAERS Safety Report 6018898-2 (Version None)
Quarter: 2008Q4

REPORT INFORMATION
  Report Type: 
  Country: None (occurrence: None)
  Receive Date: 20081221
  Receipt Date: 20081221
  Transmission Date: 20090506
  Serious: Yes (Other)
  Sender: FDA-Public Use
  Company Number: None

PATIENT
  Age: 59 Year
  Sex: Male

DRUGS (1)
  1. VARENICLINE [Suspect]
     Dates: start: 20071012, end: 20080505

REACTIONS (1)
  - DISORIENTATION [None]
